FAERS Safety Report 4321158-9 (Version None)
Quarter: 2004Q1

REPORT INFORMATION
  Report Type: 
  Country: None (occurrence: None)
  Receive Date: 20040315
  Receipt Date: 20031031
  Transmission Date: 20041129
  Serious: Yes (Hospitalization)
  Sender: FDA-Public Use
  Company Number: PHEH2003US10073

PATIENT
  Age: 84 Year
  Sex: Female

DRUGS (5)
  1. TRILEPTAL [Suspect]
     Indication: NEUROPATHY PERIPHERAL
     Dosage: BID,ORAL
     Route: 048
  2. LIPITOR [Concomitant]
  3. CELEXA [Concomitant]
  4. PEPCID [Concomitant]
  5. PREDNISONE [Concomitant]

REACTIONS (7)
  - ABDOMINAL PAIN [None]
  - BLOOD CHLORIDE DECREASED [None]
  - BLOOD CREATININE DECREASED [None]
  - BLOOD POTASSIUM DECREASED [None]
  - BLOOD SODIUM DECREASED [None]
  - BLOOD UREA DECREASED [None]
  - HYPONATRAEMIA [None]
